FAERS Safety Report 24273546 (Version 3)
Quarter: 2024Q4

REPORT INFORMATION
  Report Type: Spontaneous
  Country: ES (occurrence: ES)
  Receive Date: 20240902
  Receipt Date: 20241107
  Transmission Date: 20250114
  Serious: Yes (Disabling)
  Sender: AUROBINDO
  Company Number: ES-TEVA-VS-3185695

PATIENT
  Age: 78 Year
  Sex: Female

DRUGS (16)
  1. MANIDIPINE [Suspect]
     Active Substance: MANIDIPINE
     Indication: Hypertension
     Dosage: 20 MILLIGRAM/24 HOURS
     Route: 065
     Dates: start: 2014
  2. MANIDIPINE [Suspect]
     Active Substance: MANIDIPINE
     Dosage: 10 MILLIGRAM /24 HOURS
     Route: 065
     Dates: start: 2014
  3. LOSARTAN [Suspect]
     Active Substance: LOSARTAN
     Indication: Hypertension
     Dosage: 100 MILLIGRAM/24 HOURS
     Route: 065
     Dates: start: 2014, end: 202310
  4. LOSARTAN [Suspect]
     Active Substance: LOSARTAN
     Dosage: 50 MILLIGRAM/24 HOURS
     Route: 065
     Dates: start: 2014
  5. TORSEMIDE [Suspect]
     Active Substance: TORSEMIDE
     Indication: Oedema
     Dosage: 10 MILLIGRAM, ONCE A DAY (10 MG, Q24H)
     Route: 065
     Dates: start: 2023
  6. PREGABALIN [Suspect]
     Active Substance: PREGABALIN
     Indication: Neuralgia
     Dosage: 100 MILLIGRAM, ONCE A DAY
     Route: 065
     Dates: start: 2019
  7. DOXAZOSIN [Concomitant]
     Active Substance: DOXAZOSIN\DOXAZOSIN MESYLATE
     Indication: Hypertension
     Dosage: 2 MILLIGRAM, ONCE A DAY
     Route: 065
     Dates: start: 2014
  8. SIMVASTATIN [Concomitant]
     Active Substance: SIMVASTATIN
     Indication: Hypercholesterolaemia
     Dosage: 40 MILLIGRAM, ONCE A DAY (0-0-1)
     Route: 065
     Dates: start: 2014
  9. ASPIRIN [Concomitant]
     Active Substance: ASPIRIN
     Indication: Prophylaxis
     Dosage: 100 MILLIGRAM, ONCE A DAY
     Route: 065
     Dates: start: 2014
  10. OMEPRAZOLE [Concomitant]
     Active Substance: OMEPRAZOLE
     Indication: Prophylaxis against gastrointestinal ulcer
     Dosage: 20 MILLIGRAM, ONCE A DAY
     Route: 065
     Dates: start: 2014
  11. TORSEMIDE [Concomitant]
     Active Substance: TORSEMIDE
     Indication: Oedema
     Dosage: 10 MILLIGRAM, ONCE A DAY
     Route: 065
     Dates: start: 2023
  12. DULAGLUTIDE [Concomitant]
     Active Substance: DULAGLUTIDE
     Indication: Diabetes mellitus
     Dosage: 1.5 MILLIGRAM, EVERY WEEK
     Route: 065
     Dates: start: 2014
  13. INSULIN GLARGINE [Concomitant]
     Active Substance: INSULIN GLARGINE
     Indication: Diabetes mellitus
     Dosage: 74 INTERNATIONAL UNIT, ONCE A DAY
     Route: 065
     Dates: start: 2014
  14. INSULIN LISPRO [Concomitant]
     Active Substance: INSULIN LISPRO
     Indication: Diabetes mellitus
     Dosage: 20 INTERNATIONAL UNIT, ONCE A DAY
     Route: 065
     Dates: start: 2014
  15. BRIMONIDINE [Concomitant]
     Active Substance: BRIMONIDINE TARTRATE
     Indication: Ocular hypertension
     Dosage: 1 DROP, TWO TIMES A DAY (1-0-1)
     Route: 065
     Dates: start: 2018
  16. PREGABALIN [Concomitant]
     Active Substance: PREGABALIN
     Indication: Neuralgia
     Dosage: 100 MILLIGRAM, TWO TIMES A DAY (1-0-1)
     Route: 065
     Dates: start: 2019

REACTIONS (6)
  - Fatigue [Recovered/Resolved]
  - Hypotension [Recovered/Resolved]
  - Confusional state [Recovered/Resolved]
  - Overdose [Recovered/Resolved]
  - Asthenia [Recovered/Resolved]
  - Dizziness [Recovered/Resolved]

NARRATIVE: CASE EVENT DATE: 20230101
